FAERS Safety Report 8139315-2 (Version None)
Quarter: 2012Q1

REPORT INFORMATION
  Report Type: 
  Country: None (occurrence: None)
  Receive Date: 20120215
  Receipt Date: 20120213
  Transmission Date: 20120608
  Serious: Yes (Death, Other)
  Sender: FDA-Public Use
  Company Number: PHHY2012US012273

PATIENT
  Age: 69 Year
  Sex: Female

DRUGS (1)
  1. HEPARIN [Suspect]

REACTIONS (3)
  - GANGRENE [None]
  - HAEMORRHAGE INTRACRANIAL [None]
  - HEPARIN-INDUCED THROMBOCYTOPENIA [None]
